FAERS Safety Report 4538856-4 (Version None)
Quarter: 2004Q4

REPORT INFORMATION
  Report Type: 
  Country: None (occurrence: None)
  Receive Date: 20041222
  Receipt Date: 20041202
  Transmission Date: 20050328
  Serious: Yes (Hospitalization, Other)
  Sender: FDA-Public Use
  Company Number: USA041183717

PATIENT
  Age: 87 Year
  Sex: Female
  Weight: 48 kg

DRUGS (7)
  1. CYMBALTA [Suspect]
     Indication: DEPRESSION
     Dosage: 60 MG DAY
     Dates: start: 20041028
  2. SYNTHROID [Concomitant]
  3. ATIVAN [Concomitant]
  4. FLUTICASONE PROPIONATE W/SALMETEROL [Concomitant]
  5. PRAMIPEXOLE DIHYDROCHLORIDE [Concomitant]
  6. NEURONTIN (GABAPENTIN PFIZER) [Concomitant]
  7. SPIRIVA [Concomitant]

REACTIONS (10)
  - BLOOD CHLORIDE DECREASED [None]
  - BLOOD SODIUM DECREASED [None]
  - DELIRIUM [None]
  - DIZZINESS [None]
  - FALL [None]
  - OEDEMA [None]
  - PCO2 DECREASED [None]
  - PELVIC FRACTURE [None]
  - PHARMACEUTICAL PRODUCT COMPLAINT [None]
  - URINE OSMOLARITY INCREASED [None]
